FAERS Safety Report 6357176-9 (Version None)
Quarter: 2009Q3

REPORT INFORMATION
  Report Type: 
  Country: None (occurrence: None)
  Receive Date: 20090911
  Receipt Date: 20090831
  Transmission Date: 20100115
  Serious: Yes (Death, Hospitalization, Other)
  Sender: FDA-Public Use
  Company Number: 86436

PATIENT
  Sex: Female

DRUGS (9)
  1. LEUCOVORIN CALCIUM [Suspect]
     Indication: COLORECTAL CANCER
  2. COMPAZINE [Concomitant]
  3. AMBIEN [Concomitant]
  4. NEXIUM [Concomitant]
  5. HYDROCHLOROTHIAZIDE [Concomitant]
  6. TRAZODONE HCL [Concomitant]
  7. METFORMIN HCL [Concomitant]
  8. WELLBUTRIN [Concomitant]
  9. PAXIL [Concomitant]

REACTIONS (2)
  - DYSPNOEA [None]
  - PULMONARY FIBROSIS [None]
